FAERS Safety Report 17158442 (Version 1)
Quarter: 2019Q4

REPORT INFORMATION
  Report Type: Spontaneous
  Country: US (occurrence: US)
  Receive Date: 20191216
  Receipt Date: 20191216
  Transmission Date: 20200122
  Serious: Yes (Other)
  Sender: FDA-Public Use
  Company Number: US-MYLANLABS-2019M1123781

PATIENT
  Age: 5 Decade
  Sex: Female

DRUGS (5)
  1. OMEPRAZOLE. [Suspect]
     Active Substance: OMEPRAZOLE
     Indication: GASTROOESOPHAGEAL REFLUX DISEASE
     Dosage: REPLACED WITH RANITIDINE
     Route: 065
  2. OMEPRAZOLE. [Suspect]
     Active Substance: OMEPRAZOLE
     Dosage: RESTARTED IN LATE APRIL 2014
     Route: 065
     Dates: start: 201404
  3. CYCLOSPORINE. [Concomitant]
     Active Substance: CYCLOSPORINE
     Indication: PRODUCT USED FOR UNKNOWN INDICATION
     Route: 065
     Dates: end: 2016
  4. RANITIDINE. [Suspect]
     Active Substance: RANITIDINE
     Indication: GASTROOESOPHAGEAL REFLUX DISEASE
     Route: 065
  5. ADALIMUMAB [Concomitant]
     Active Substance: ADALIMUMAB
     Indication: CROHN^S DISEASE
     Route: 065

REACTIONS (6)
  - Glomerulosclerosis [Recovering/Resolving]
  - Proteinuria [Recovering/Resolving]
  - Condition aggravated [Unknown]
  - Tubulointerstitial nephritis [Recovering/Resolving]
  - Gastrooesophageal reflux disease [Unknown]
  - End stage renal disease [Recovering/Resolving]

NARRATIVE: CASE EVENT DATE: 201802
